FAERS Safety Report 8073961-X (Version None)
Quarter: 2012Q1

REPORT INFORMATION
  Report Type: 
  Country: None (occurrence: None)
  Receive Date: 20120126
  Receipt Date: 20120117
  Transmission Date: 20120608
  Serious: Yes (Hospitalization, Disabling)
  Sender: FDA-Public Use
  Company Number: FR-JNJFOC-20110909705

PATIENT
  Age: 74 Year
  Sex: Female

DRUGS (7)
  1. REMICADE [Suspect]
     Indication: ENTEROCOLITIS HAEMORRHAGIC
     Route: 042
     Dates: start: 20080421
  2. REMICADE [Suspect]
     Route: 042
     Dates: start: 20080415
  3. REMICADE [Suspect]
     Indication: COLITIS ULCERATIVE
     Route: 042
     Dates: start: 20080421
  4. REMICADE [Suspect]
     Route: 042
     Dates: start: 20080415
  5. HUMIRA [Suspect]
     Indication: ENTEROCOLITIS HAEMORRHAGIC
     Dates: start: 20080528
  6. IMURAN [Suspect]
     Indication: ENTEROCOLITIS HAEMORRHAGIC
     Dates: start: 20080415
  7. FLAGYL [Suspect]
     Indication: CLOSTRIDIAL INFECTION

REACTIONS (6)
  - CLOSTRIDIAL INFECTION [None]
  - DIPLOPIA [None]
  - BACK PAIN [None]
  - PANCREATITIS [None]
  - PERIPHERAL SENSORIMOTOR NEUROPATHY [None]
  - TREATMENT FAILURE [None]
